FAERS Safety Report 9471924 (Version 1)
Quarter: 2013Q3

REPORT INFORMATION
  Report Type: Spontaneous
  Country: US (occurrence: US)
  Receive Date: 20130823
  Receipt Date: 20130823
  Transmission Date: 20140515
  Serious: Yes (Other)
  Sender: FDA-Public Use
  Company Number: US-PAR PHARMACEUTICAL, INC-2013SCPR006101

PATIENT
  Sex: 0

DRUGS (3)
  1. LAMOTRIGINE [Suspect]
     Indication: BIPOLAR DISORDER
     Dosage: 2 DF, OD
     Route: 048
     Dates: start: 201307
  2. LAMOTRIGINE [Suspect]
     Indication: BIPOLAR DISORDER
     Dosage: 2 DF, OD
     Route: 048
     Dates: start: 201307
  3. LAMOTRIGINE [Suspect]
     Indication: BIPOLAR DISORDER
     Dosage: 250 MG, / DAY, TWO AND HALF TABLETS
     Route: 048
     Dates: start: 201307, end: 201307

REACTIONS (2)
  - Major depression [Not Recovered/Not Resolved]
  - Nausea [Not Recovered/Not Resolved]
